FAERS Safety Report 4446697-1 (Version None)
Quarter: 2004Q3

REPORT INFORMATION
  Report Type: 
  Country: None (occurrence: None)
  Receive Date: 20040908
  Receipt Date: 20040825
  Transmission Date: 20050211
  Serious: Yes (Hospitalization)
  Sender: FDA-Public Use
  Company Number: 04H-087-0271677-00

PATIENT
  Age: 60 Year
  Sex: Male

DRUGS (4)
  1. PRECEDEX [Suspect]
     Indication: SEDATION
     Dosage: 0.2 MCG/KG/HR, INTRAVENOUS
     Route: 042
     Dates: start: 20040804, end: 20040805
  2. NICORANDIL [Concomitant]
  3. DOPAMINE HCL [Concomitant]
  4. CEFMETAZOLE SODIUM [Concomitant]

REACTIONS (1)
  - TRANSIENT ISCHAEMIC ATTACK [None]
